FAERS Safety Report 5921291-1 (Version None)
Quarter: 2008Q4

REPORT INFORMATION
  Report Type: 
  Country: None (occurrence: None)
  Receive Date: 20081014
  Receipt Date: 20080929
  Transmission Date: 20090506
  Serious: Yes (Hospitalization)
  Sender: FDA-Public Use
  Company Number: 2007BI026269

PATIENT
  Age: 29 Year
  Sex: Female

DRUGS (4)
  1. TYSABRI [Suspect]
     Indication: RELAPSING-REMITTING MULTIPLE SCLEROSIS
     Dosage: 300 MG;QM;IV
     Route: 042
     Dates: start: 20070715
  2. MANTADIX [Concomitant]
  3. STABLON [Concomitant]
  4. . [Concomitant]

REACTIONS (3)
  - LICHEN PLANUS [None]
  - LICHENIFICATION [None]
  - TOXIC SKIN ERUPTION [None]
